FAERS Safety Report 7603943-0 (Version None)
Quarter: 2011Q3

REPORT INFORMATION
  Report Type: 
  Country: None (occurrence: None)
  Receive Date: 20110712
  Receipt Date: 20110704
  Transmission Date: 20111222
  Serious: Yes (Other)
  Sender: FDA-Public Use
  Company Number: FR-ROCHE-787687

PATIENT
  Age: 40 Year
  Sex: Female

DRUGS (1)
  1. ACTEMRA [Suspect]
     Indication: RHEUMATOID ARTHRITIS
     Dosage: FREQUENCY:CYCLE, LAST INFUSION WAS POSTPONED
     Route: 042

REACTIONS (1)
  - LUPUS-LIKE SYNDROME [None]
